FAERS Safety Report 8465475-X (Version None)
Quarter: 2012Q2

REPORT INFORMATION
  Report Type: 
  Country: None (occurrence: None)
  Receive Date: 20120626
  Receipt Date: 20120618
  Transmission Date: 20120825
  Serious: Yes (Hospitalization, Other)
  Sender: FDA-Public Use
  Company Number: US-NOVOPROD-354105

PATIENT
  Age: 61 Year
  Sex: Female
  Weight: 50.794 kg

DRUGS (2)
  1. DIOVAN [Concomitant]
     Indication: HYPERTENSION
     Dosage: UNK
     Route: 048
  2. VICTOZA [Suspect]
     Indication: TYPE 2 DIABETES MELLITUS
     Dosage: 1.8 MG, QD
     Route: 058
     Dates: start: 20100101, end: 20120501

REACTIONS (5)
  - NEPHROLITHIASIS [None]
  - LUNG NEOPLASM MALIGNANT [None]
  - HEPATIC NEOPLASM MALIGNANT [None]
  - BRAIN CANCER METASTATIC [None]
  - KIDNEY INFECTION [None]
